FAERS Safety Report 4276571-5 (Version None)
Quarter: 2004Q1

REPORT INFORMATION
  Report Type: 
  Country: None (occurrence: None)
  Receive Date: 20040120
  Receipt Date: 20040108
  Transmission Date: 20041129
  Serious: No
  Sender: FDA-Public Use
  Company Number: A0491956A

PATIENT
  Age: 69 Year
  Sex: Male

DRUGS (3)
  1. CONTAC 12 HOUR [Suspect]
     Indication: NASOPHARYNGITIS
     Dosage: ORAL
     Route: 048
     Dates: start: 20031231, end: 20031231
  2. TAMSULOSIN HCL [Suspect]
  3. SAW PALMETTO [Concomitant]

REACTIONS (3)
  - ANURIA [None]
  - BENIGN PROSTATIC HYPERPLASIA [None]
  - URINARY RETENTION [None]
